FAERS Safety Report 22038802 (Version 1)
Quarter: 2023Q1

REPORT INFORMATION
  Report Type: Spontaneous
  Country: CA (occurrence: CA)
  Receive Date: 20230227
  Receipt Date: 20230227
  Transmission Date: 20230418
  Serious: Yes (Other)
  Sender: FDA-Public Use
  Company Number: CA-CHEPLA-2023002475

PATIENT
  Age: 5 Day
  Sex: Male
  Weight: 0.9800 kg

DRUGS (9)
  1. GANCICLOVIR [Suspect]
     Active Substance: GANCICLOVIR
     Indication: Congenital cytomegalovirus infection
     Dosage: IV INFUSION VIA A CENTRAL LINE OVER 1 HOUR ON DOL 5/SUSPENDED AT DOL 10
     Route: 042
  2. GANCICLOVIR [Suspect]
     Active Substance: GANCICLOVIR
     Indication: Congenital cytomegalovirus infection
     Dosage: IV INFUSION REINSTATED ON DOL 20?DAILY DOSE: 2.3 MILLIGRAM/KG
     Route: 042
  3. GANCICLOVIR [Suspect]
     Active Substance: GANCICLOVIR
     Indication: Congenital cytomegalovirus infection
     Dosage: IV GANCICLOVIR TREATMENT WAS REINSTATED AT DOL 28?DAILY DOSE: 2.1 MILLIGRAM/KG
     Route: 042
  4. GANCICLOVIR [Suspect]
     Active Substance: GANCICLOVIR
     Indication: Congenital cytomegalovirus infection
     Dosage: IV GANCICLOVIR TREATMENT WAS REINSTATED AT DOL 28
     Route: 042
  5. GANCICLOVIR [Suspect]
     Active Substance: GANCICLOVIR
     Indication: Congenital cytomegalovirus infection
     Dosage: IV GANCICLOVIR TREATMENT WAS REINSTATED AT DOL 36?DAILY DOSE: 4 MILLIGRAM/KG
     Route: 042
  6. GANCICLOVIR [Suspect]
     Active Substance: GANCICLOVIR
     Indication: Congenital cytomegalovirus infection
     Dosage: IV GANCICLOVIR TREATMENT WAS REINSTATED AT DOL 48?DAILY DOSE: 5.6 MILLIGRAM/KG
     Route: 042
  7. GANCICLOVIR [Suspect]
     Active Substance: GANCICLOVIR
     Indication: Congenital cytomegalovirus infection
     Dosage: IV GANCICLOVIR TREATMENT WAS REINSTATED AT DOL 55?DAILY DOSE: 5.4 MILLIGRAM/KG
     Route: 042
  8. VALGANCICLOVIR [Suspect]
     Active Substance: VALGANCICLOVIR
     Indication: Congenital cytomegalovirus infection
     Dosage: DOL-69/TWICE A DAY (7.4 MG/KG/DOSE) ?DAILY DOSE: 14.2 MILLIGRAM/KG
     Route: 048
  9. VALGANCICLOVIR [Suspect]
     Active Substance: VALGANCICLOVIR
     Indication: Congenital cytomegalovirus infection
     Dosage: REINSTATED ON DOL 84?DAILY DOSE: 18 MILLIGRAM/KG
     Route: 048

REACTIONS (5)
  - Necrotising enterocolitis neonatal [Unknown]
  - Thrombocytopenia [Unknown]
  - Neutropenia [Unknown]
  - Product use issue [Recovered/Resolved]
  - Product use in unapproved indication [Recovered/Resolved]
